FAERS Safety Report 11425110 (Version 1)
Quarter: 2015Q3

REPORT INFORMATION
  Report Type: Spontaneous
  Country: FR (occurrence: FR)
  Receive Date: 20150827
  Receipt Date: 20150827
  Transmission Date: 20151125
  Serious: Yes (Other)
  Sender: FDA-Public Use
  Company Number: FR-BAYER-2015-404163

PATIENT
  Age: 78 Year
  Sex: Female

DRUGS (1)
  1. IZILOX [Suspect]
     Active Substance: MOXIFLOXACIN HYDROCHLORIDE
     Indication: BRONCHITIS BACTERIAL
     Dosage: 400 MG, QD
     Route: 048
     Dates: start: 20150706, end: 20150707

REACTIONS (4)
  - Abdominal pain [Recovered/Resolved]
  - Rectal tenesmus [Recovered/Resolved]
  - Flatulence [Recovered/Resolved]
  - Abdominal pain upper [Recovered/Resolved]

NARRATIVE: CASE EVENT DATE: 20150708
